FAERS Safety Report 8436023-5 (Version None)
Quarter: 2012Q2

REPORT INFORMATION
  Report Type: 
  Country: None (occurrence: None)
  Receive Date: 20120611
  Receipt Date: 20120531
  Transmission Date: 20120825
  Serious: Yes (Other)
  Sender: FDA-Public Use
  Company Number: AUR-APL-2012-02546

PATIENT
  Age: 63 Year
  Sex: Female
  Weight: 73 kg

DRUGS (11)
  1. DEXLANSOPRAZOLE [Suspect]
     Indication: GASTROOESOPHAGEAL REFLUX DISEASE
     Dosage: 120 MG (60 MG, 2 IN 1 D), ORAL, 60 MG (60 MG, 1 IN 1 D), ORAL
     Route: 048
  2. DEXLANSOPRAZOLE [Suspect]
     Indication: OESOPHAGEAL DISORDER
     Dosage: 120 MG (60 MG, 2 IN 1 D), ORAL, 60 MG (60 MG, 1 IN 1 D), ORAL
     Route: 048
  3. NEXIUM [Suspect]
     Indication: DYSPEPSIA
     Dosage: 120 MG (60 MG, SINCE TWO YEARS), ORAL
     Route: 048
  4. NEXIUM [Suspect]
     Indication: GASTROOESOPHAGEAL REFLUX DISEASE
     Dosage: 120 MG (60 MG, SINCE TWO YEARS), ORAL
     Route: 048
  5. VENLAFAXINE HCL [Suspect]
     Indication: ANXIETY
     Dosage: 300 MG (150 MG, SINCE LAST FIVE YEARS), ORAL
     Route: 048
  6. VENLAFAXINE HCL [Suspect]
     Indication: DEPRESSION
     Dosage: 300 MG (150 MG, SINCE LAST FIVE YEARS), ORAL
     Route: 048
  7. VENLAFAXINE HCL [Suspect]
     Indication: NERVOUS SYSTEM DISORDER
     Dosage: 300 MG (150 MG, SINCE LAST FIVE YEARS), ORAL
     Route: 048
  8. VENLAFAXINE HCL [Suspect]
     Indication: AGITATION
     Dosage: 300 MG (150 MG, SINCE LAST FIVE YEARS), ORAL
     Route: 048
  9. VENLAFAXINE HCL [Suspect]
     Indication: PANIC ATTACK
     Dosage: 300 MG (150 MG, SINCE LAST FIVE YEARS), ORAL
     Route: 048
  10. VENLAFAXINE HCL [Suspect]
     Indication: SLEEP DISORDER
     Dosage: 300 MG (150 MG, SINCE LAST FIVE YEARS), ORAL
     Route: 048
  11. VENLAFAXINE HCL [Suspect]
     Indication: BIPOLAR DISORDER
     Dosage: 300 MG (150 MG, SINCE LAST FIVE YEARS), ORAL
     Route: 048

REACTIONS (7)
  - OROPHARYNGEAL PAIN [None]
  - ULCER [None]
  - NASOPHARYNGITIS [None]
  - PHARYNGEAL HAEMORRHAGE [None]
  - INCREASED UPPER AIRWAY SECRETION [None]
  - EAR PAIN [None]
  - LUNG DISORDER [None]
